FAERS Safety Report 11570744 (Version 1)
Quarter: 2015Q3

REPORT INFORMATION
  Report Type: Spontaneous
  Country: US (occurrence: US)
  Receive Date: 20150929
  Receipt Date: 20150929
  Transmission Date: 20151125
  Serious: Yes (Other)
  Sender: FDA-Public Use
  Company Number: US-BAYER-2015-431151

PATIENT
  Age: 18 Year
  Sex: Female

DRUGS (1)
  1. GADAVIST [Suspect]
     Active Substance: GADOBUTROL
     Indication: DIAGNOSTIC PROCEDURE
     Dosage: 5 CC
     Dates: start: 20150924, end: 20150924

REACTIONS (2)
  - Oxygen saturation decreased [None]
  - Throat tightness [None]

NARRATIVE: CASE EVENT DATE: 20150924
